FAERS Safety Report 5371306-7 (Version None)
Quarter: 2007Q2

REPORT INFORMATION
  Report Type: 
  Country: None (occurrence: None)
  Receive Date: 20070615
  Receipt Date: 20061106
  Transmission Date: 20071010
  Serious: Yes (Other)
  Sender: FDA-Public Use
  Company Number: 200618357US

PATIENT
  Age: 53 Year
  Sex: Male
  Weight: 97.9 kg

DRUGS (14)
  1. LANTUS [Suspect]
     Dosage: 30 U HS SC
     Route: 058
     Dates: start: 20060703
  2. LANTUS [Suspect]
     Dosage: SC
     Route: 058
     Dates: start: 20060101
  3. LANTUS [Suspect]
     Dosage: SC
     Route: 059
     Dates: start: 20060823
  4. NOVOLOG [Suspect]
     Dosage: SC
     Route: 058
     Dates: start: 20060703
  5. PANTOPRAZOLE SODIUM [Concomitant]
  6. SOTALOL HYDROCHLORIDE (BETASPACE) [Concomitant]
  7. METFORMIN HYDROCHLORIDE [Suspect]
  8. PIOGLITAZONE [Suspect]
  9. HYDROCHLOROTHIAZIDE, VALSARTAN (DIOVAN HCT) [Concomitant]
  10. AVAPRO [Concomitant]
  11. METFORMIN HCL [Suspect]
  12. NORVASC [Concomitant]
  13. METOPROLOL TARTRATE [Concomitant]
  14. CARDIZEM [Concomitant]

REACTIONS (9)
  - BLOOD GLUCOSE DECREASED [None]
  - BRONCHOSPASM [None]
  - COUGH [None]
  - DYSPNOEA [None]
  - FATIGUE [None]
  - INJURY [None]
  - LARYNGEAL OEDEMA [None]
  - LARYNGOSPASM [None]
  - WEIGHT INCREASED [None]
